FAERS Safety Report 9508888 (Version 1)
Quarter: 2013Q1

REPORT INFORMATION
  Report Type: Spontaneous
  Country: US (occurrence: None)
  Receive Date: 20130305
  Receipt Date: 20130305
  Transmission Date: 20140127
  Serious: No
  Sender: FDA-Public Use
  Company Number: 163-21880-12090615

PATIENT
  Age: 72 Year
  Sex: Male
  Weight: 99 kg

DRUGS (1)
  1. REVLIMID [Suspect]
     Indication: PLASMA CELL MYELOMA
     Dosage: 10MG, 21 IN 28D, PO
     Route: 048
     Dates: start: 20120309

REACTIONS (1)
  - Inappropriate schedule of drug administration [None]
